FAERS Safety Report 10079451 (Version 1)
Quarter: 2014Q2

REPORT INFORMATION
  Report Type: Spontaneous
  Country: IT (occurrence: IT)
  Receive Date: 20140415
  Receipt Date: 20140415
  Transmission Date: 20141212
  Serious: Yes (Other)
  Sender: FDA-Public Use
  Company Number: IT-BRISTOL-MYERS SQUIBB COMPANY-20614848

PATIENT
  Age: 83 Year
  Sex: Male

DRUGS (1)
  1. COUMADIN TABS 5 MG [Suspect]
     Dosage: DRUG INTERRUPTED ON 21-MAR-2014.
     Dates: start: 20130101

REACTIONS (2)
  - Urosepsis [Unknown]
  - Haematuria [Recovering/Resolving]
